FAERS Safety Report 8272161-8 (Version None)
Quarter: 2012Q2

REPORT INFORMATION
  Report Type: 
  Country: None (occurrence: None)
  Receive Date: 20120410
  Receipt Date: 20120329
  Transmission Date: 20120825
  Serious: Yes (Other)
  Sender: FDA-Public Use
  Company Number: US-ASTRAZENECA-2012SE02567

PATIENT
  Age: 66 Year
  Sex: Male

DRUGS (11)
  1. VANDETANIB [Suspect]
     Indication: THYROID CANCER
     Route: 048
  2. COLACE [Concomitant]
     Route: 048
  3. LISINOPRIL [Concomitant]
     Route: 048
  4. CITRACAL PLUS HEART HEALTH [Concomitant]
     Dosage: 315-250-200 MG OID
     Route: 048
  5. METFORMIN HCL [Concomitant]
     Route: 048
  6. IMODIUM A-D [Concomitant]
     Route: 048
  7. LEVOXYL [Concomitant]
     Route: 048
  8. VANDETANIB [Suspect]
     Route: 048
  9. CALCITRIOL [Concomitant]
     Route: 048
  10. ASPIRIN CHILDREN [Concomitant]
     Route: 048
  11. OXYCODONE HCL [Concomitant]
     Route: 048

REACTIONS (7)
  - SKIN FISSURES [None]
  - GLOSSODYNIA [None]
  - FATIGUE [None]
  - ACNE [None]
  - DIARRHOEA [None]
  - BLOOD PRESSURE INCREASED [None]
  - OEDEMA PERIPHERAL [None]
